FAERS Safety Report 19653261 (Version 3)
Quarter: 2021Q3

REPORT INFORMATION
  Report Type: Spontaneous
  Country: US (occurrence: US)
  Receive Date: 20210803
  Receipt Date: 20210821
  Transmission Date: 20211014
  Serious: No
  Sender: FDA-Public Use
  Company Number: NVSC2021US173784

PATIENT
  Sex: Male

DRUGS (2)
  1. PATADAY [Suspect]
     Active Substance: OLOPATADINE HYDROCHLORIDE
     Indication: MACULAR OEDEMA
     Dosage: 1 DROP BOTH EYES
     Route: 065
     Dates: start: 20210721
  2. PATADAY [Suspect]
     Active Substance: OLOPATADINE HYDROCHLORIDE
     Indication: HEADACHE
     Dosage: 1 DROP BOTH EYES
     Route: 065
     Dates: start: 20210720

REACTIONS (1)
  - Vision blurred [Not Recovered/Not Resolved]
